FAERS Safety Report 7958551-9 (Version None)
Quarter: 2011Q4

REPORT INFORMATION
  Report Type: 
  Country: None (occurrence: None)
  Receive Date: 20111206
  Receipt Date: 20111201
  Transmission Date: 20120403
  Serious: No
  Sender: FDA-Public Use
  Company Number: US-BIOGENIDEC-2011BI026290

PATIENT
  Sex: Female

DRUGS (1)
  1. TYSABRI [Suspect]
     Indication: MULTIPLE SCLEROSIS
     Route: 042
     Dates: start: 20110509

REACTIONS (10)
  - BALANCE DISORDER [None]
  - PAIN IN EXTREMITY [None]
  - FATIGUE [None]
  - OEDEMA PERIPHERAL [None]
  - ALOPECIA [None]
  - DIZZINESS [None]
  - GAIT DISTURBANCE [None]
  - MUSCLE SPASTICITY [None]
  - GENERAL PHYSICAL HEALTH DETERIORATION [None]
  - PAIN [None]
